FAERS Safety Report 7579052-6 (Version None)
Quarter: 2011Q2

REPORT INFORMATION
  Report Type: 
  Country: None (occurrence: None)
  Receive Date: 20110628
  Receipt Date: 20110623
  Transmission Date: 20111010
  Serious: Yes (Other)
  Sender: FDA-Public Use
  Company Number: CHPA2011US03842

PATIENT
  Age: 40 Year
  Sex: Female
  Weight: 68.027 kg

DRUGS (2)
  1. PREVACID 24 HR [Suspect]
     Indication: ABDOMINAL PAIN UPPER
     Dosage: 30 MG, QD
     Route: 048
     Dates: start: 20090101
  2. PREVACID 24 HR [Suspect]
     Dosage: 15 MG, QD
     Route: 048

REACTIONS (10)
  - INTENTIONAL DRUG MISUSE [None]
  - ABDOMINAL HERNIA [None]
  - OFF LABEL USE [None]
  - HERPES ZOSTER [None]
  - LYME DISEASE [None]
  - THERAPEUTIC RESPONSE UNEXPECTED [None]
  - FRACTURED COCCYX [None]
  - OVERDOSE [None]
  - MALAISE [None]
  - STRESS [None]
